FAERS Safety Report 7539641-1 (Version None)
Quarter: 2011Q2

REPORT INFORMATION
  Report Type: 
  Country: None (occurrence: None)
  Receive Date: 20110610
  Receipt Date: 20110602
  Transmission Date: 20111010
  Serious: Yes (Other)
  Sender: FDA-Public Use
  Company Number: JP-PFIZER INC-2011125249

PATIENT
  Age: 72 Year
  Sex: Male

DRUGS (4)
  1. RHEUMATREX [Concomitant]
     Route: 048
  2. FOLIC ACID [Concomitant]
  3. CELECOXIB [Suspect]
     Dosage: 200 MG, DAILY
     Route: 048
  4. PREDNISOLONE [Concomitant]
     Route: 048

REACTIONS (1)
  - NEPHROTIC SYNDROME [None]
